FAERS Safety Report 7285864-9 (Version None)
Quarter: 2011Q1

REPORT INFORMATION
  Report Type: 
  Country: None (occurrence: None)
  Receive Date: 20110125
  Receipt Date: 20110104
  Transmission Date: 20110831
  Serious: Yes (Life-Threatening)
  Sender: FDA-Public Use
  Company Number: 20110011

PATIENT
  Age: 48 Year
  Sex: Female
  Weight: 76.2043 kg

DRUGS (2)
  1. DEXAMETHASONE SODIUM PHOSPHATE INJECTION, USP (4930-25) [Suspect]
     Indication: BRONCHITIS
     Dosage: 2 MG ONCE INTRAMUSCULAR
     Route: 030
     Dates: start: 20101116, end: 20101116
  2. ROCEPHIN [Suspect]
     Indication: BRONCHITIS
     Dosage: 1 GM ONCE INTRAMUSCULAR
     Route: 030
     Dates: start: 20101116, end: 20101116

REACTIONS (1)
  - ANAPHYLACTIC REACTION [None]
